FAERS Safety Report 22721381 (Version 2)
Quarter: 2024Q3

REPORT INFORMATION
  Report Type: Spontaneous
  Country: US (occurrence: US)
  Receive Date: 20230719
  Receipt Date: 20240723
  Transmission Date: 20241016
  Serious: Yes (Other)
  Sender: OTSUKA
  Company Number: US-OTSUKA-2023_013409

PATIENT
  Age: 61 Year
  Sex: Male
  Weight: 106.59 kg

DRUGS (1)
  1. REXULTI [Suspect]
     Active Substance: BREXPIPRAZOLE
     Indication: Major depression
     Dosage: 0.25 MG, QD (AT NIGHT)
     Route: 065
     Dates: start: 20230428, end: 20230512

REACTIONS (7)
  - Suicidal ideation [Unknown]
  - Tachyphrenia [Unknown]
  - Blood glucose abnormal [Unknown]
  - Confusional state [Unknown]
  - Agitation [Unknown]
  - Anxiety [Unknown]
  - Underdose [Unknown]

NARRATIVE: CASE EVENT DATE: 20230428
